FAERS Safety Report 16357618 (Version 1)
Quarter: 2019Q2

REPORT INFORMATION
  Report Type: Spontaneous
  Country: US (occurrence: US)
  Receive Date: 20190527
  Receipt Date: 20190527
  Transmission Date: 20190711
  Serious: No
  Sender: FDA-Public Use
  Company Number: US-009507513-1905USA004160

PATIENT
  Age: 8 Month
  Sex: Female
  Weight: 8.05 kg

DRUGS (10)
  1. SEVOFLURANE. [Concomitant]
     Active Substance: SEVOFLURANE
     Indication: MAINTENANCE OF ANAESTHESIA
  2. BRIDION [Suspect]
     Active Substance: SUGAMMADEX
     Indication: NEUROMUSCULAR BLOCKADE REVERSAL
     Dosage: 32 MILLIGRAM
  3. SEVOFLURANE. [Concomitant]
     Active Substance: SEVOFLURANE
     Indication: INDUCTION OF ANAESTHESIA
  4. ROCURONIUM BROMIDE. [Concomitant]
     Active Substance: ROCURONIUM BROMIDE
     Dosage: 15 MILLIGRAM
     Route: 042
  5. ROCURONIUM BROMIDE. [Concomitant]
     Active Substance: ROCURONIUM BROMIDE
     Dosage: 5 UNK
  6. FENTANYL. [Concomitant]
     Active Substance: FENTANYL
     Dosage: .6 MICROGRAM PER KILOGRAM
  7. CALCIUM CHLORIDE. [Concomitant]
     Active Substance: CALCIUM CHLORIDE
     Indication: HYPOTENSION
  8. HEPARIN [Concomitant]
     Active Substance: HEPARIN SODIUM
     Indication: PROPHYLAXIS
  9. CEFAZOLIN [Concomitant]
     Active Substance: CEFAZOLIN
     Indication: PROPHYLAXIS
  10. BRIDION [Suspect]
     Active Substance: SUGAMMADEX
     Dosage: 32 MILLIGRAM  REDOSED

REACTIONS (2)
  - Recurrence of neuromuscular blockade [Recovered/Resolved]
  - Off label use [Unknown]
